FAERS Safety Report 6406593-7 (Version None)
Quarter: 2009Q4

REPORT INFORMATION
  Report Type: 
  Country: None (occurrence: None)
  Receive Date: 20091014
  Receipt Date: 20091005
  Transmission Date: 20100525
  Serious: Yes (Hospitalization)
  Sender: FDA-Public Use
  Company Number: GXKR2009NL11008

PATIENT
  Age: 60 Year
  Sex: Female
  Weight: 60 kg

DRUGS (2)
  1. ALENDRONIC ACID SANDOZ (NGX) (ALENDRONIC ACID) TABLET, 70 MG [Suspect]
     Indication: OSTEOPOROSIS
     Dosage: 70 MG, QW; ORAL
     Route: 048
     Dates: start: 20080717, end: 20090101
  2. ZOPICLONE (ZOPICLONE) TABLET [Concomitant]

REACTIONS (3)
  - LANGERHANS' CELL HISTIOCYTOSIS [None]
  - MUSCULAR WEAKNESS [None]
  - PRURITUS [None]
